FAERS Safety Report 5910466-3 (Version None)
Quarter: 2008Q4

REPORT INFORMATION
  Report Type: 
  Country: None (occurrence: None)
  Receive Date: 20081006
  Receipt Date: 20081006
  Transmission Date: 20090506
  Serious: No
  Sender: FDA-Public Use
  Company Number: None

PATIENT
  Age: 63 Year
  Sex: Female
  Weight: 78.4723 kg

DRUGS (1)
  1. RECLAST [Suspect]
     Indication: OSTEOPOROSIS
     Dosage: 15 MIN. INTERVENOUS INJECTION ONCE A YEAR IV DRIP
     Route: 041

REACTIONS (3)
  - ASTHENIA [None]
  - HEADACHE [None]
  - HYPERSOMNIA [None]
